FAERS Safety Report 5585512-X (Version None)
Quarter: 2008Q1

REPORT INFORMATION
  Report Type: 
  Country: None (occurrence: None)
  Receive Date: 20080109
  Receipt Date: 20080102
  Transmission Date: 20080703
  Serious: Yes (Disabling, Other)
  Sender: FDA-Public Use
  Company Number: A0690779A

PATIENT
  Sex: Male

DRUGS (1)
  1. FLOVENT [Suspect]
     Indication: ASTHMA
     Dosage: 2PUFF TWICE PER DAY
     Route: 055

REACTIONS (6)
  - BALANCE DISORDER [None]
  - BONE DENSITY DECREASED [None]
  - FATIGUE [None]
  - GROWTH RETARDATION [None]
  - IMMUNOSUPPRESSION [None]
  - MINERAL DEFICIENCY [None]
